FAERS Safety Report 23905741 (Version 4)
Quarter: 2024Q4

REPORT INFORMATION
  Report Type: Spontaneous
  Country: US (occurrence: US)
  Receive Date: 20240527
  Receipt Date: 20241015
  Transmission Date: 20250114
  Serious: Yes (Other)
  Sender: SANOFI AVENTIS
  Company Number: US-SA-SAC20240522000382

PATIENT
  Age: 51 Year
  Sex: Female

DRUGS (3)
  1. DUPIXENT [Suspect]
     Active Substance: DUPILUMAB
     Indication: Eczema
     Dosage: 600 MG, 1X
     Route: 058
     Dates: start: 20240416, end: 20240416
  2. DUPIXENT [Suspect]
     Active Substance: DUPILUMAB
     Indication: Dermatitis atopic
     Dosage: 300 MG, QOW
     Route: 058
     Dates: start: 20240430, end: 202407
  3. XOLAIR [Concomitant]
     Active Substance: OMALIZUMAB
     Dosage: UNK

REACTIONS (9)
  - Autoimmune thyroiditis [Unknown]
  - Injection site urticaria [Unknown]
  - Infection parasitic [Unknown]
  - Gait disturbance [Recovered/Resolved]
  - Back pain [Not Recovered/Not Resolved]
  - Rash pruritic [Unknown]
  - Condition aggravated [Not Recovered/Not Resolved]
  - Rash macular [Unknown]
  - Arthralgia [Recovered/Resolved]

NARRATIVE: CASE EVENT DATE: 20240101
